FAERS Safety Report 8131274-1 (Version None)
Quarter: 2012Q1

REPORT INFORMATION
  Report Type: 
  Country: None (occurrence: None)
  Receive Date: 20120213
  Receipt Date: 20120131
  Transmission Date: 20120608
  Serious: Yes (Death)
  Sender: FDA-Public Use
  Company Number: CH-JNJFOC-20120205197

PATIENT

DRUGS (2)
  1. OLAPARIB [Suspect]
     Indication: NEOPLASM
     Dosage: N=1
     Route: 048
  2. DOXORUBICIN HCL [Suspect]
     Indication: NEOPLASM
     Route: 042

REACTIONS (1)
  - PNEUMONITIS [None]
